FAERS Safety Report 18927250 (Version 2)
Quarter: 2021Q1

REPORT INFORMATION
  Report Type: Spontaneous
  Country: US (occurrence: US)
  Receive Date: 20210223
  Receipt Date: 20210330
  Transmission Date: 20210420
  Serious: Yes (Other)
  Sender: FDA-Public Use
  Company Number: US-GLAXOSMITHKLINE-US2021GSK050062

PATIENT
  Sex: Male

DRUGS (12)
  1. ZANTAC [Suspect]
     Active Substance: RANITIDINE HYDROCHLORIDE
     Indication: STRESS
     Dosage: 150 MG, QD
     Route: 065
     Dates: start: 199001, end: 199701
  2. ZANTAC [Suspect]
     Active Substance: RANITIDINE HYDROCHLORIDE
     Indication: DYSPEPSIA
     Dosage: 75 MG BOTH
     Route: 065
     Dates: start: 199001, end: 199701
  3. RANITIDINE CAPSULE [Suspect]
     Active Substance: RANITIDINE
     Indication: DYSPEPSIA
     Dosage: 75 MG BOTH
     Route: 065
     Dates: start: 199001, end: 199701
  4. ZANTAC [Suspect]
     Active Substance: RANITIDINE HYDROCHLORIDE
     Indication: DYSPEPSIA
     Dosage: 75 MG BOTH
     Route: 065
     Dates: start: 199001, end: 199701
  5. RANITIDINE. [Suspect]
     Active Substance: RANITIDINE
     Indication: STRESS
     Dosage: 150 MG, QD
     Route: 065
     Dates: start: 199701, end: 201901
  6. ZANTAC [Suspect]
     Active Substance: RANITIDINE HYDROCHLORIDE
     Indication: DYSPEPSIA
     Dosage: 75 MG BOTH
     Route: 065
     Dates: start: 199001, end: 199701
  7. ZANTAC [Suspect]
     Active Substance: RANITIDINE HYDROCHLORIDE
     Indication: STRESS
     Dosage: 150 MG, QD
     Route: 065
     Dates: start: 199001, end: 199701
  8. RANITIDINE. [Suspect]
     Active Substance: RANITIDINE
     Indication: DYSPEPSIA
     Dosage: 75 MG BOTH
     Route: 065
     Dates: start: 199701, end: 201901
  9. ZANTAC [Suspect]
     Active Substance: RANITIDINE HYDROCHLORIDE
     Indication: STRESS
     Dosage: 150 MG, QD
     Route: 065
     Dates: start: 199001, end: 199701
  10. RANITIDINE CAPSULE [Suspect]
     Active Substance: RANITIDINE
     Indication: STRESS
     Dosage: 150 MG, QD
     Route: 065
     Dates: start: 199001, end: 199701
  11. RANITIDINE. [Suspect]
     Active Substance: RANITIDINE
     Indication: STRESS
     Dosage: 150 MG, QD
     Route: 065
     Dates: start: 199701, end: 201901
  12. RANITIDINE. [Suspect]
     Active Substance: RANITIDINE
     Indication: DYSPEPSIA
     Dosage: 75 MG BOTH
     Route: 065
     Dates: start: 199701, end: 201901

REACTIONS (1)
  - Renal cancer [Unknown]
